FAERS Safety Report 5826999-4 (Version None)
Quarter: 2008Q3

REPORT INFORMATION
  Report Type: 
  Country: None (occurrence: None)
  Receive Date: 20080725
  Receipt Date: 20080717
  Transmission Date: 20090109
  Serious: Yes (Other)
  Sender: FDA-Public Use
  Company Number: CHNY2008NZ02793

PATIENT
  Sex: Male

DRUGS (1)
  1. HABITROL [Suspect]
     Indication: SMOKING CESSATION THERAPY
     Dosage: 14 MG, QD, TRANSDERMAL
     Route: 062

REACTIONS (4)
  - APPLICATION SITE ANAESTHESIA [None]
  - APPLICATION SITE PAIN [None]
  - RENAL DISORDER [None]
  - RENAL PAIN [None]
